FAERS Safety Report 7810908-2 (Version None)
Quarter: 2011Q4

REPORT INFORMATION
  Report Type: 
  Country: None (occurrence: None)
  Receive Date: 20111013
  Receipt Date: 20111013
  Transmission Date: 20120403
  Serious: Yes (Hospitalization)
  Sender: FDA-Public Use
  Company Number: US-PFIZER INC-2011240879

PATIENT
  Sex: Female
  Weight: 85.714 kg

DRUGS (14)
  1. PROVENTIL-HFA [Concomitant]
     Dosage: 2 PUFFS (108 MCG/ACT) PRN EVERY 4 HOURS
  2. COZAAR [Concomitant]
     Dosage: 50 MG, 1 IN 1 D
     Route: 048
  3. ZOCOR [Concomitant]
     Dosage: 40 MG,Q HS L IN 1 D
     Route: 048
  4. DALIRESP [Suspect]
     Indication: CHRONIC OBSTRUCTIVE PULMONARY DISEASE
     Dosage: 500 UG, L IN 1 D
     Route: 048
     Dates: start: 20110824, end: 20110923
  5. MULTI-VITAMINS [Concomitant]
     Dosage: UNK
  6. PRILOSEC [Concomitant]
     Dosage: 20 MG, 2X/DAY, 2 IN 1 D
     Route: 048
  7. BUDESONIDE [Concomitant]
     Dosage: 0.5 MG/2 ML, 2X/DAY
  8. NORVASC [Concomitant]
     Dosage: 2.5 MG, 1X/DAY
     Route: 048
  9. CELEXA [Concomitant]
     Dosage: 40 MG, 1X/DAY
     Route: 048
     Dates: end: 20110830
  10. PERFOROMIST [Concomitant]
     Dosage: 2 ML, 2X/DAY
  11. ASPIRIN [Concomitant]
     Dosage: UNK
  12. DELTASONE [Concomitant]
     Indication: CHRONIC OBSTRUCTIVE PULMONARY DISEASE
     Dosage: 40 MG X 3 DAYS; 30 MG X 3 DAYS; 20 MG X 3 DAYS; 10 MG X 3 DAYS (10 MG)
     Route: 048
     Dates: start: 20110824, end: 20110905
  13. ZOLOFT [Suspect]
     Dosage: 50 MG, DAILY
     Route: 048
     Dates: start: 20110830
  14. ASCORBIC ACID [Concomitant]
     Dosage: UNK

REACTIONS (8)
  - DYSPNOEA [None]
  - VOMITING [None]
  - TREMOR [None]
  - NAUSEA [None]
  - DECREASED APPETITE [None]
  - DIARRHOEA [None]
  - MOOD ALTERED [None]
  - FEAR [None]
